FAERS Safety Report 11039548 (Version 1)
Quarter: 2015Q2

REPORT INFORMATION
  Report Type: Spontaneous
  Country: US (occurrence: US)
  Receive Date: 20150416
  Receipt Date: 20150416
  Transmission Date: 20150821
  Serious: No
  Sender: FDA-Public Use
  Company Number: US-GLAXOSMITHKLINE-US2015GSK051091

PATIENT
  Sex: Male

DRUGS (12)
  1. MELATONIN [Concomitant]
     Active Substance: MELATONIN
  2. SENNA S [Concomitant]
     Active Substance: DOCUSATE SODIUM\SENNA LEAF
  3. FORADIL INHALER [Concomitant]
  4. LOVASTATIN. [Concomitant]
     Active Substance: LOVASTATIN
  5. PROAIR HFA [Concomitant]
     Active Substance: ALBUTEROL SULFATE
  6. ASPIRIN. [Concomitant]
     Active Substance: ASPIRIN
  7. NITROSTAT SL TABLET [Concomitant]
  8. FENTANYL TRANSDERMAL SYSTEM [Concomitant]
     Active Substance: FENTANYL
  9. METOPROLOL [Concomitant]
     Active Substance: METOPROLOL
  10. VOTRIENT [Suspect]
     Active Substance: PAZOPANIB HYDROCHLORIDE
     Indication: PRODUCT USED FOR UNKNOWN INDICATION
     Dosage: 200 MG, U
     Dates: start: 20150320
  11. HYDROCHLOROTHIAZIDE. [Concomitant]
     Active Substance: HYDROCHLOROTHIAZIDE
  12. HYDROCODONE + APAP [Concomitant]

REACTIONS (8)
  - Drug dose omission [Recovered/Resolved]
  - Dehydration [Unknown]
  - Weight decreased [Unknown]
  - Constipation [Recovered/Resolved]
  - Abnormal faeces [Unknown]
  - Dysgeusia [Unknown]
  - Faeces discoloured [Unknown]
  - Decreased appetite [Unknown]
